FAERS Safety Report 7401880-8 (Version None)
Quarter: 2011Q2

REPORT INFORMATION
  Report Type: 
  Country: None (occurrence: None)
  Receive Date: 20110408
  Receipt Date: 20110324
  Transmission Date: 20111010
  Serious: No
  Sender: FDA-Public Use
  Company Number: US-JNJFOC-20110311968

PATIENT
  Sex: Male
  Weight: 73.48 kg

DRUGS (2)
  1. DILAUDID [Concomitant]
     Indication: BREAKTHROUGH PAIN
     Route: 065
  2. DURAGESIC [Suspect]
     Indication: PAIN
     Route: 062

REACTIONS (2)
  - INAPPROPRIATE SCHEDULE OF DRUG ADMINISTRATION [None]
  - WITHDRAWAL SYNDROME [None]
